FAERS Safety Report 8472410-7 (Version None)
Quarter: 2012Q2

REPORT INFORMATION
  Report Type: 
  Country: None (occurrence: None)
  Receive Date: 20120627
  Receipt Date: 20110804
  Transmission Date: 20120825
  Serious: No
  Sender: FDA-Public Use
  Company Number: US-AMGEN-USASP2011040074

PATIENT
  Sex: Male

DRUGS (3)
  1. PROCRIT [Suspect]
     Indication: RENAL FAILURE CHRONIC
     Dosage: 3000 UNIT, QWK
  2. NUTROPIN AQ [Concomitant]
  3. LOSARTAN POTASSIUM [Concomitant]

REACTIONS (1)
  - INJECTION SITE PAIN [None]
